FAERS Safety Report 21192584 (Version 3)
Quarter: 2022Q4

REPORT INFORMATION
  Report Type: Spontaneous
  Country: US (occurrence: US)
  Receive Date: 20220809
  Receipt Date: 20221225
  Transmission Date: 20230113
  Serious: Yes (Other)
  Sender: FDA-Public Use
  Company Number: US-BIOGEN-2022BI01146609

PATIENT
  Age: 36 Year
  Sex: Female
  Weight: 75.546 kg

DRUGS (6)
  1. TYSABRI [Suspect]
     Active Substance: NATALIZUMAB
     Indication: Multiple sclerosis
     Route: 050
  2. TYSABRI [Suspect]
     Active Substance: NATALIZUMAB
     Route: 050
     Dates: start: 20180515, end: 20210518
  3. TYSABRI [Suspect]
     Active Substance: NATALIZUMAB
     Dosage: EVERY 5 TO 6 WEEKS
     Route: 050
     Dates: start: 2018
  4. NORTRIPTYLINE [Suspect]
     Active Substance: NORTRIPTYLINE
     Indication: Sensory disturbance
     Route: 050
  5. PROVIGIL [Concomitant]
     Active Substance: MODAFINIL
     Indication: Obstructive sleep apnoea syndrome
     Dosage: 1 TO 0.5 PER DAY
     Route: 050
  6. TOPAMAX [Concomitant]
     Active Substance: TOPIRAMATE
     Indication: Headache
     Route: 050

REACTIONS (1)
  - Focal dyscognitive seizures [Not Recovered/Not Resolved]

NARRATIVE: CASE EVENT DATE: 20200401
